FAERS Safety Report 5522079-6 (Version None)
Quarter: 2007Q4

REPORT INFORMATION
  Report Type: 
  Country: None (occurrence: None)
  Receive Date: 20071115
  Receipt Date: 20071030
  Transmission Date: 20080405
  Serious: Yes (Death)
  Sender: FDA-Public Use
  Company Number: ENC200700100

PATIENT
  Age: 44 Year
  Sex: Female

DRUGS (2)
  1. ARGATROBAN [Suspect]
     Indication: ANTITHROMBIN III DECREASED
     Dosage: 240 MG, QD, INTRAVENOUS
     Route: 042
     Dates: start: 20070628, end: 20070629
  2. ARGATROBAN [Suspect]
     Indication: THROMBOSIS IN DEVICE
     Dosage: 240 MG, QD, INTRAVENOUS
     Route: 042
     Dates: start: 20070628, end: 20070629

REACTIONS (4)
  - CEREBRAL HAEMORRHAGE [None]
  - HAEMORRHAGE [None]
  - RENAL FAILURE ACUTE [None]
  - UPPER GASTROINTESTINAL HAEMORRHAGE [None]
